FAERS Safety Report 6095740-5 (Version None)
Quarter: 2009Q1

REPORT INFORMATION
  Report Type: 
  Country: None (occurrence: None)
  Receive Date: 20090227
  Receipt Date: 20080606
  Transmission Date: 20090719
  Serious: No
  Sender: FDA-Public Use
  Company Number: A0731740A

PATIENT
  Age: 54 Year
  Sex: Female

DRUGS (6)
  1. LAMICTAL [Suspect]
     Indication: BIPOLAR DISORDER
     Route: 048
     Dates: start: 20080401
  2. CYMBALTA [Suspect]
     Indication: BIPOLAR DISORDER
     Dosage: 80MG PER DAY
     Route: 048
     Dates: start: 20071101
  3. CELEXA [Concomitant]
  4. INDERAL [Concomitant]
  5. CAMPRAL [Concomitant]
  6. PROMETHAZINE [Concomitant]

REACTIONS (1)
  - NAUSEA [None]
